FAERS Safety Report 8016566-9 (Version None)
Quarter: 2011Q4

REPORT INFORMATION
  Report Type: 
  Country: None (occurrence: None)
  Receive Date: 20111230
  Receipt Date: 20111228
  Transmission Date: 20120403
  Serious: No
  Sender: FDA-Public Use
  Company Number: US-BAYER-2011-124486

PATIENT
  Age: 79 Year
  Sex: Male

DRUGS (7)
  1. PROSCAR [Concomitant]
  2. CARDURA [Concomitant]
  3. NAPROXEN (ALEVE) [Suspect]
     Indication: BACK PAIN
     Dosage: 2 USED ONLY ONE TIME
     Route: 048
     Dates: start: 20111225, end: 20111225
  4. FISH OIL [Concomitant]
  5. ASPIRIN [Concomitant]
     Dosage: 81 MG
  6. SYNTHROID [Concomitant]
  7. B6-VITAMIIN NS [Concomitant]

REACTIONS (2)
  - FREQUENT BOWEL MOVEMENTS [None]
  - FAECES DISCOLOURED [None]
